FAERS Safety Report 10172684 (Version 2)
Quarter: 2014Q2

REPORT INFORMATION
  Report Type: Spontaneous
  Country: DE (occurrence: DE)
  Receive Date: 20140515
  Receipt Date: 20140611
  Transmission Date: 20141212
  Serious: Yes (Other)
  Sender: FDA-Public Use
  Company Number: DE-BRISTOL-MYERS SQUIBB COMPANY-20725685

PATIENT
  Age: 37 Year
  Sex: Female

DRUGS (1)
  1. ABILIFY [Suspect]
     Dosage: DOSE REDUCED TO 15MG

REACTIONS (3)
  - Psychotic disorder [Recovering/Resolving]
  - Abortion spontaneous [Unknown]
  - Pregnancy [Recovered/Resolved]
